FAERS Safety Report 8113958-4 (Version None)
Quarter: 2012Q1

REPORT INFORMATION
  Report Type: 
  Country: None (occurrence: None)
  Receive Date: 20120203
  Receipt Date: 20120130
  Transmission Date: 20120608
  Serious: Yes (Hospitalization)
  Sender: FDA-Public Use
  Company Number: US-ABBOTT-12P-163-0891488-00

PATIENT
  Sex: Female
  Weight: 103.06 kg

DRUGS (5)
  1. HUMIRA [Suspect]
     Indication: PSORIATIC ARTHROPATHY
     Dates: start: 20111101
  2. BYETTA [Concomitant]
     Indication: DIABETES MELLITUS
  3. PRANDIN [Concomitant]
     Indication: DIABETES MELLITUS
  4. KLONOPIN [Concomitant]
     Indication: SLEEP DISORDER THERAPY
  5. NEURONTIN [Concomitant]
     Indication: ARTHRALGIA

REACTIONS (3)
  - PROCEDURAL PAIN [None]
  - BENIGN OVARIAN TUMOUR [None]
  - ABDOMINAL PAIN [None]
